FAERS Safety Report 7259774-7 (Version None)
Quarter: 2011Q1

REPORT INFORMATION
  Report Type: 
  Country: None (occurrence: None)
  Receive Date: 20110130
  Receipt Date: 20100907
  Transmission Date: 20110831
  Serious: No
  Sender: FDA-Public Use
  Company Number: US-ABBOTT-10P-163-0668792-00

PATIENT
  Age: 42 Year
  Sex: Female

DRUGS (11)
  1. AFTOPRO [Concomitant]
     Indication: SINUSITIS
  2. TOPAMAX [Concomitant]
     Indication: MIGRAINE
  3. VIVELLE [Concomitant]
     Indication: MENOPAUSE
     Route: 061
  4. NEXIUM [Concomitant]
     Indication: PRODUCT USED FOR UNKNOWN INDICATION
  5. HUMIRA [Suspect]
     Indication: RHEUMATOID ARTHRITIS
     Dates: start: 20100602
  6. ADVAIR [Concomitant]
     Indication: PRODUCT USED FOR UNKNOWN INDICATION
     Route: 055
  7. ALLEGY INJECTION [Concomitant]
     Indication: PRODUCT USED FOR UNKNOWN INDICATION
  8. VERAMIST [Concomitant]
     Indication: HYPERSENSITIVITY
     Route: 055
  9. VERAMIST [Concomitant]
     Indication: SINUSITIS
  10. AFTOPRO [Concomitant]
     Indication: HYPERSENSITIVITY
     Route: 055
  11. MUCINEX [Concomitant]
     Indication: PRODUCT USED FOR UNKNOWN INDICATION

REACTIONS (7)
  - PARAESTHESIA [None]
  - MUSCULOSKELETAL STIFFNESS [None]
  - LIGAMENT RUPTURE [None]
  - ARTHRALGIA [None]
  - HYPOAESTHESIA [None]
  - DISCOMFORT [None]
  - COUGH [None]
